FAERS Safety Report 7406199-7 (Version None)
Quarter: 2011Q2

REPORT INFORMATION
  Report Type: 
  Country: None (occurrence: None)
  Receive Date: 20110405
  Receipt Date: 20110405
  Transmission Date: 20111010
  Serious: Yes (Other)
  Sender: FDA-Public Use
  Company Number: None

PATIENT
  Age: 61 Year
  Sex: Female
  Weight: 76.2043 kg

DRUGS (1)
  1. KY WARMING JELLY [Suspect]
     Dates: start: 20101130, end: 20101130

REACTIONS (2)
  - RASH [None]
  - ACCIDENTAL EXPOSURE [None]
